FAERS Safety Report 9693139 (Version 1)
Quarter: 2013Q4

REPORT INFORMATION
  Report Type: Spontaneous
  Country: US (occurrence: US)
  Receive Date: 20131118
  Receipt Date: 20131118
  Transmission Date: 20140711
  Serious: Yes (Life-Threatening, Other)
  Sender: FDA-Public Use
  Company Number: US-ROXANE LABORATORIES, INC.-2013-RO-01823RO

PATIENT
  Age: 61 Year
  Sex: Female

DRUGS (1)
  1. OXYCODONE [Suspect]
     Route: 048

REACTIONS (6)
  - Right ventricular failure [Recovered/Resolved with Sequelae]
  - Acute respiratory failure [Unknown]
  - Overdose [Unknown]
  - Renal failure acute [Recovered/Resolved]
  - Acute hepatic failure [Recovered/Resolved]
  - Aspiration [Unknown]
